FAERS Safety Report 4273925-8 (Version None)
Quarter: 2004Q1

REPORT INFORMATION
  Report Type: 
  Country: None (occurrence: None)
  Receive Date: 20040115
  Receipt Date: 20031229
  Transmission Date: 20041129
  Serious: Yes (Death)
  Sender: FDA-Public Use
  Company Number: 20040100001

PATIENT
  Sex: Female

DRUGS (1)
  1. INFUMORPH [Suspect]
     Dates: start: 20020831

REACTIONS (1)
  - DEATH [None]
